FAERS Safety Report 8305610-7 (Version None)
Quarter: 2012Q2

REPORT INFORMATION
  Report Type: 
  Country: None (occurrence: None)
  Receive Date: 20120423
  Receipt Date: 20120413
  Transmission Date: 20120825
  Serious: Yes (Hospitalization)
  Sender: FDA-Public Use
  Company Number: FR-BRISTOL-MYERS SQUIBB COMPANY-16528796

PATIENT
  Age: 88 Year
  Sex: Male

DRUGS (9)
  1. COUMADIN [Suspect]
     Indication: CARDIAC FAILURE
     Dosage: 1DF= 2-3-4MG TABS
     Route: 048
     Dates: start: 20120131, end: 20120215
  2. ATORVASTATIN [Concomitant]
  3. BISOPROLOL FUMARATE [Concomitant]
     Dosage: TABS
  4. METFORMIN HCL [Concomitant]
  5. ASPIRIN [Suspect]
     Route: 048
  6. DIAMICRON [Concomitant]
  7. POTASSIUM CHLORIDE [Concomitant]
  8. CORDARONE [Suspect]
     Indication: CARDIAC FAILURE
     Route: 048
     Dates: start: 20120131, end: 20120217
  9. FUROSEMIDE [Concomitant]

REACTIONS (2)
  - ANAEMIA [None]
  - RETROPERITONEAL HAEMATOMA [None]
